FAERS Safety Report 14775349 (Version 1)
Quarter: 2018Q2

REPORT INFORMATION
  Report Type: Spontaneous
  Country: US (occurrence: US)
  Receive Date: 20180418
  Receipt Date: 20180418
  Transmission Date: 20180711
  Serious: Yes (Hospitalization, Other)
  Sender: FDA-Public Use
  Company Number: US-SAOL THERAPEUTICS-2018SAO00423

PATIENT
  Age: 54 Year
  Sex: Female
  Weight: 70.3 kg

DRUGS (11)
  1. BACLOFEN. [Suspect]
     Active Substance: BACLOFEN
     Indication: PAIN
     Dosage: 13 ?G, \DAY
     Route: 037
     Dates: start: 2008
  2. TESTOSTERONE. [Concomitant]
     Active Substance: TESTOSTERONE
  3. CREON [Concomitant]
     Active Substance: PANCRELIPASE AMYLASE\PANCRELIPASE LIPASE\PANCRELIPASE PROTEASE
  4. HYDROMORPHONE [Suspect]
     Active Substance: HYDROMORPHONE
     Route: 037
  5. DILAUDID [Concomitant]
     Active Substance: HYDROMORPHONE HYDROCHLORIDE
  6. MOVANTIK [Concomitant]
     Active Substance: NALOXEGOL OXALATE
  7. CALCIUM [Concomitant]
     Active Substance: CALCIUM
  8. BUPIVACAINE. [Suspect]
     Active Substance: BUPIVACAINE
     Route: 037
  9. BACLOFEN. [Suspect]
     Active Substance: BACLOFEN
     Indication: POST LAMINECTOMY SYNDROME
  10. GABAPENTIN. [Concomitant]
     Active Substance: GABAPENTIN
  11. VITAMIN D [Concomitant]
     Active Substance: CHOLECALCIFEROL

REACTIONS (7)
  - Off label use [Unknown]
  - Device occlusion [Recovered/Resolved]
  - Vomiting [Recovered/Resolved]
  - Nausea [Recovered/Resolved]
  - Device infusion issue [Recovered/Resolved]
  - Pancreatitis chronic [Unknown]
  - Diarrhoea [Recovered/Resolved]

NARRATIVE: CASE EVENT DATE: 20180321
